FAERS Safety Report 18226544 (Version 1)
Quarter: 2020Q3

REPORT INFORMATION
  Report Type: Spontaneous
  Country: US (occurrence: US)
  Receive Date: 20200901
  Receipt Date: 20200901
  Transmission Date: 20201103
  Serious: Yes (Other)
  Sender: FDA-Public Use
  Company Number: None

PATIENT
  Age: 65 Year
  Sex: Female

DRUGS (1)
  1. DEFERASIROX 90MG XIROMED [Suspect]
     Active Substance: DEFERASIROX
     Indication: SICKLE CELL ANAEMIA
     Route: 048
     Dates: start: 20200822, end: 20200823

REACTIONS (4)
  - Therapy cessation [None]
  - Pruritus [None]
  - Swollen tongue [None]
  - Hypersensitivity [None]

NARRATIVE: CASE EVENT DATE: 20200823
